FAERS Safety Report 16375584 (Version 1)
Quarter: 2019Q2

REPORT INFORMATION
  Report Type: Spontaneous
  Country: JP (occurrence: SE)
  Receive Date: 20190531
  Receipt Date: 20190531
  Transmission Date: 20190711
  Serious: Yes (Hospitalization)
  Sender: FDA-Public Use
  Company Number: SE-TEVA-2019-SE-1056499

PATIENT
  Age: 87 Year
  Sex: Female

DRUGS (6)
  1. LANZOR [Suspect]
     Active Substance: LANSOPRAZOLE
     Indication: UNEVALUABLE EVENT
     Dosage: 30 MG, UNK
     Route: 048
  2. PANTOPRAZOLE SODIUM SESQUIHYDRATE [Concomitant]
     Active Substance: PANTOPRAZOLE SODIUM
     Dosage: 40 MILLIGRAM DAILY; 40 MG,QD
     Route: 042
  3. CYKLOKAPRON [Concomitant]
     Active Substance: TRANEXAMIC ACID
     Indication: ABDOMINAL PAIN
     Dosage: 1 G,QID
     Route: 065
     Dates: start: 20050103, end: 20050105
  4. CYKLOKAPRON [Concomitant]
     Active Substance: TRANEXAMIC ACID
     Indication: VOMITING
  5. LANSOPRAZOLE. [Suspect]
     Active Substance: LANSOPRAZOLE
     Indication: PRODUCT USED FOR UNKNOWN INDICATION
     Dosage: 30 MILLIGRAM DAILY; 30 MG,QD
     Route: 048
     Dates: start: 20050105, end: 20050106
  6. MADOPARK [Concomitant]
     Active Substance: BENSERAZIDE HYDROCHLORIDE\LEVODOPA
     Dosage: UNK
     Route: 048

REACTIONS (5)
  - Disorientation [Recovered/Resolved]
  - Motor dysfunction [Unknown]
  - Aggression [Unknown]
  - Confusional state [Recovered/Resolved]
  - Hallucination [Recovered/Resolved]

NARRATIVE: CASE EVENT DATE: 20050106
